FAERS Safety Report 4930228-3 (Version None)
Quarter: 2006Q1

REPORT INFORMATION
  Report Type: 
  Country: None (occurrence: None)
  Receive Date: 20060228
  Receipt Date: 20060203
  Transmission Date: 20060701
  Serious: Yes (Life-Threatening)
  Sender: FDA-Public Use
  Company Number: JP200601002974

PATIENT
  Age: 87 Year
  Sex: Female

DRUGS (10)
  1. EVISTA [Suspect]
     Indication: OSTEOPOROSIS
     Dosage: 60 MG, DAILY (1/D), ORAL
     Route: 048
     Dates: start: 20051124, end: 20060101
  2. NORVASK (AMLODIPINE) TABLET [Concomitant]
  3. TANATRIL ^TANABE^ (IMIDAPRIL HYDROCHLORIDE) [Concomitant]
  4. TRICHLORMETHIAZIDE [Concomitant]
  5. METHYCOBAL (MECOBALAMIN) [Concomitant]
  6. JUVELA /JPN/ (TOCOPHERYL NICOTINATE) [Concomitant]
  7. DEPAS (ETIZOLAM) [Concomitant]
  8. MEVALOTIN /JPN/ (PRAVASTATIN SODIUM) [Concomitant]
  9. NAPAGELN (FELBINAC) LOTION [Concomitant]
  10. STICK ZENOL (CAMPHOR, DIPHENHYDRAMINE, METHYL SALICYLATE, PEPPERMINT O [Concomitant]

REACTIONS (3)
  - BLOOD FIBRINOGEN INCREASED [None]
  - CEREBRAL INFARCTION [None]
  - PROTHROMBIN TIME PROLONGED [None]
